FAERS Safety Report 9637028 (Version 1)
Quarter: 2013Q4

REPORT INFORMATION
  Report Type: Spontaneous
  Country: US (occurrence: US)
  Receive Date: 20131022
  Receipt Date: 20131022
  Transmission Date: 20140711
  Serious: No
  Sender: FDA-Public Use
  Company Number: US-009507513-1310USA006963

PATIENT
  Age: 63 Year
  Sex: Female

DRUGS (4)
  1. LIPTRUZET [Suspect]
     Indication: BLOOD CHOLESTEROL
     Dosage: 10/10 MG TAKEN ONCE DAILY IN THE EVENING
     Route: 048
     Dates: start: 201308
  2. ASPIRIN [Concomitant]
  3. PREVACID [Concomitant]
  4. VITAMINS (UNSPECIFIED) [Concomitant]

REACTIONS (1)
  - Myalgia [Not Recovered/Not Resolved]
